FAERS Safety Report 12084952 (Version 1)
Quarter: 2016Q1

REPORT INFORMATION
  Report Type: Spontaneous
  Country: US (occurrence: US)
  Receive Date: 20160217
  Receipt Date: 20160217
  Transmission Date: 20160526
  Serious: Yes (Other)
  Sender: FDA-Public Use
  Company Number: US-JNJFOC-20160210597

PATIENT

DRUGS (2)
  1. IBRUTINIB [Suspect]
     Active Substance: IBRUTINIB
     Indication: THERAPY NAIVE
     Route: 048
     Dates: start: 201311, end: 201507
  2. IBRUTINIB [Suspect]
     Active Substance: IBRUTINIB
     Indication: CHRONIC LYMPHOCYTIC LEUKAEMIA REFRACTORY
     Route: 048
     Dates: start: 201311, end: 201507

REACTIONS (7)
  - Richter^s syndrome [Unknown]
  - Off label use [Unknown]
  - Chronic lymphocytic leukaemia [Unknown]
  - Haemorrhage [Unknown]
  - Infection [Unknown]
  - Atrial fibrillation [Unknown]
  - Product use issue [Unknown]
